FAERS Safety Report 15002036 (Version 1)
Quarter: 2018Q2

REPORT INFORMATION
  Report Type: Spontaneous
  Country: US (occurrence: US)
  Receive Date: 20180612
  Receipt Date: 20180612
  Transmission Date: 20180711
  Serious: No
  Sender: FDA-Public Use
  Company Number: US-SEPTODONT-201704264

PATIENT
  Age: 48 Year
  Sex: Female

DRUGS (2)
  1. SEPTOCAINE AND EPINEPHRINE [Suspect]
     Active Substance: ARTICAINE HYDROCHLORIDE\EPINEPHRINE BITARTRATE
     Indication: LOCAL ANAESTHESIA
     Dosage: INFILTRATION AND NERVE BLOCK USING 30G 30X25MM NEEDLE IN HEALTHY TISSUE
     Route: 004
     Dates: start: 20170807, end: 20170807
  2. ETYNODIOL DIACETATE [Concomitant]
     Active Substance: ETHYNODIOL DIACETATE
     Indication: CONTRACEPTION
     Dates: start: 20130422

REACTIONS (2)
  - Discomfort [Recovered/Resolved]
  - Burning sensation [Recovered/Resolved]

NARRATIVE: CASE EVENT DATE: 20170807
